FAERS Safety Report 19482295 (Version 5)
Quarter: 2023Q1

REPORT INFORMATION
  Report Type: Report from Study
  Country: US (occurrence: US)
  Receive Date: 20210701
  Receipt Date: 20230103
  Transmission Date: 20230418
  Serious: Yes (Other)
  Sender: FDA-Public Use
  Company Number: US-BEH-2021127984

PATIENT
  Age: 35 Year
  Sex: Male

DRUGS (8)
  1. HIZENTRA [Suspect]
     Active Substance: HUMAN IMMUNOGLOBULIN G
     Indication: Chronic inflammatory demyelinating polyradiculoneuropathy
     Dosage: 36 GRAM, QW
     Route: 065
     Dates: start: 2020, end: 202106
  2. HIZENTRA [Suspect]
     Active Substance: HUMAN IMMUNOGLOBULIN G
     Dosage: UNK
     Route: 065
     Dates: start: 20210201
  3. HIZENTRA [Suspect]
     Active Substance: HUMAN IMMUNOGLOBULIN G
     Dosage: UNK
     Route: 065
  4. HIZENTRA [Suspect]
     Active Substance: HUMAN IMMUNOGLOBULIN G
     Dosage: UNK
     Route: 065
  5. HIZENTRA [Suspect]
     Active Substance: HUMAN IMMUNOGLOBULIN G
     Dosage: UNK
     Route: 065
  6. HIZENTRA [Suspect]
     Active Substance: HUMAN IMMUNOGLOBULIN G
     Dosage: 4.0, QW
     Route: 058
  7. HIZENTRA [Suspect]
     Active Substance: HUMAN IMMUNOGLOBULIN G
     Dosage: UNK
     Route: 058
  8. RITUXAN [Concomitant]
     Active Substance: RITUXIMAB
     Dosage: AS ORDERED

REACTIONS (13)
  - Infusion site mass [Not Recovered/Not Resolved]
  - Infusion site vesicles [Not Recovered/Not Resolved]
  - Administration site wound [Not Recovered/Not Resolved]
  - Infusion site ulcer [Recovered/Resolved]
  - Impaired healing [Not Recovered/Not Resolved]
  - Infusion site infection [Recovered/Resolved]
  - Infusion site extravasation [Unknown]
  - Infusion site pain [Unknown]
  - Infusion site infection [Unknown]
  - Infusion site scar [Unknown]
  - Infusion site haemorrhage [Unknown]
  - Infusion site haemorrhage [Unknown]
  - Infusion site extravasation [Unknown]

NARRATIVE: CASE EVENT DATE: 20210321
